FAERS Safety Report 25901363 (Version 2)
Quarter: 2025Q4

REPORT INFORMATION
  Report Type: Spontaneous
  Country: US (occurrence: US)
  Receive Date: 20251009
  Receipt Date: 20251104
  Transmission Date: 20260117
  Serious: No
  Sender: ROCHE
  Company Number: US-ROCHE-10000397406

PATIENT
  Age: 85 Year
  Sex: Female

DRUGS (1)
  1. ACTEMRA ACTPEN [Suspect]
     Active Substance: TOCILIZUMAB
     Indication: Giant cell arteritis
     Route: 058
     Dates: start: 202509

REACTIONS (4)
  - Device defective [Unknown]
  - Device mechanical issue [Unknown]
  - Exposure via skin contact [Unknown]
  - No adverse event [Unknown]

NARRATIVE: CASE EVENT DATE: 20250919
